FAERS Safety Report 8182498-9 (Version None)
Quarter: 2012Q1

REPORT INFORMATION
  Report Type: 
  Country: None (occurrence: None)
  Receive Date: 20120305
  Receipt Date: 20120223
  Transmission Date: 20120608
  Serious: Yes (Hospitalization)
  Sender: FDA-Public Use
  Company Number: DE-BIOGENIDEC-2012BI006761

PATIENT
  Age: 62 Year
  Sex: Male
  Weight: 100 kg

DRUGS (5)
  1. PANTOPRAZOLE [Concomitant]
     Indication: GASTROOESOPHAGEAL REFLUX DISEASE
     Dates: start: 20070101
  2. AVONEX [Suspect]
     Indication: MULTIPLE SCLEROSIS
     Route: 030
     Dates: start: 20070101
  3. BETABLOCKER [Concomitant]
     Indication: HYPERTENSION
     Dates: start: 20070101
  4. ANTI-CHOLESTEROL DRUG [Concomitant]
     Indication: GOUT
     Dates: start: 20070101
  5. ANTI-CHOLESTEROL DRUG [Concomitant]
     Indication: HYPERLIPIDAEMIA
     Dates: start: 20070101

REACTIONS (5)
  - DEEP VEIN THROMBOSIS [None]
  - PULMONARY EMBOLISM [None]
  - ASTHMA [None]
  - OSTEOARTHRITIS [None]
  - OSTEONECROSIS [None]
